FAERS Safety Report 4839595-2 (Version None)
Quarter: 2005Q4

REPORT INFORMATION
  Report Type: 
  Country: None (occurrence: None)
  Receive Date: 20051125
  Receipt Date: 20051104
  Transmission Date: 20060501
  Serious: Yes (Hospitalization, Other)
  Sender: FDA-Public Use
  Company Number: ENT 2005-0154

PATIENT
  Age: 82 Year
  Sex: Female

DRUGS (14)
  1. COMTAN [Suspect]
     Indication: PARKINSON'S DISEASE
     Dosage: 600 MG (200 MG, 3 IN 1 D)
     Route: 048
     Dates: start: 20051004, end: 20051012
  2. NITROLINGUAL PUMPSPRAY [Concomitant]
  3. LASIX [Concomitant]
  4. ALTACE [Concomitant]
  5. SINEMET [Concomitant]
  6. NOVASEN [Concomitant]
  7. SERTRALINE HCL [Concomitant]
  8. ADALAT [Concomitant]
  9. APO-ISDN [Concomitant]
  10. BISACODYL [Concomitant]
  11. ZOCOR [Concomitant]
  12. LACTULOSE [Concomitant]
  13. ATROVENT [Concomitant]
  14. NITRGLYCERIN TRANSDERMAL SYSTEM [Concomitant]

REACTIONS (4)
  - ANGINA PECTORIS [None]
  - ANXIETY [None]
  - CARDIAC DISORDER [None]
  - OEDEMA [None]
